FAERS Safety Report 15321883 (Version 1)
Quarter: 2018Q3

REPORT INFORMATION
  Report Type: Spontaneous
  Country: CO (occurrence: CO)
  Receive Date: 20180827
  Receipt Date: 20180827
  Transmission Date: 20181010
  Serious: Yes (Hospitalization)
  Sender: FDA-Public Use
  Company Number: CO-MYLANLABS-2018M1063035

PATIENT
  Age: 54 Year
  Sex: Male

DRUGS (3)
  1. TACROLIMUS. [Suspect]
     Active Substance: TACROLIMUS
     Indication: IMMUNOSUPPRESSANT DRUG THERAPY
     Route: 065
  2. PREDNISOLONE. [Suspect]
     Active Substance: PREDNISOLONE
     Indication: IMMUNOSUPPRESSANT DRUG THERAPY
     Route: 065
  3. METHYLPREDNISOLONE. [Suspect]
     Active Substance: METHYLPREDNISOLONE
     Indication: TRANSPLANT REJECTION
     Dosage: 500 MG, QD
     Route: 065

REACTIONS (9)
  - Liver graft loss [Recovered/Resolved]
  - Hepatic artery thrombosis [Recovered/Resolved]
  - Aspergillus infection [Recovered/Resolved]
  - Acinetobacter bacteraemia [Unknown]
  - Pneumonia klebsiella [Unknown]
  - Jaundice [Unknown]
  - Bile duct obstruction [Recovered/Resolved]
  - Vascular pseudoaneurysm [Unknown]
  - Asthenia [Unknown]
